FAERS Safety Report 14073718 (Version 1)
Quarter: 2017Q4

REPORT INFORMATION
  Report Type: Spontaneous
  Country: US (occurrence: US)
  Receive Date: 20171010
  Receipt Date: 20171010
  Transmission Date: 20180321
  Serious: No
  Sender: FDA-Public Use
  Company Number: US-JNJFOC-20170825007

PATIENT
  Age: 5 Month

DRUGS (4)
  1. TYLENOL [Suspect]
     Active Substance: ACETAMINOPHEN
     Route: 065
  2. TYLENOL [Suspect]
     Active Substance: ACETAMINOPHEN
     Indication: EPIDERMOLYSIS BULLOSA
     Dosage: DAILY
     Route: 065
  3. ZINC. [Concomitant]
     Active Substance: ZINC
     Indication: EPIDERMOLYSIS BULLOSA
     Route: 065
  4. MORPHINE [Concomitant]
     Active Substance: MORPHINE
     Indication: EPIDERMOLYSIS BULLOSA
     Route: 065

REACTIONS (2)
  - Product use in unapproved indication [Unknown]
  - Off label use [Unknown]
